FAERS Safety Report 8628873 (Version 2)
Quarter: 2012Q4

REPORT INFORMATION
  Report Type: 
  Country: AU (occurrence: AU)
  Receive Date: 20120621
  Receipt Date: 20120905
  Transmission Date: 20130627
  Serious: Yes (Life-Threatening, Other)
  Sender: FDA-Public Use
  Company Number: AU-B.I. PHARMACEUTICALS,INC./RIDGEFIELD-2012-AU-01103AU

PATIENT
  Age: 83 Year
  Sex: Female
  Weight: 50.5 kg

DRUGS (7)
  1. PRADAXA [Suspect]
     Indication: ATRIAL FIBRILLATION
     Dosage: 220 mg
     Dates: start: 20111025
  2. LIPITOR [Concomitant]
     Indication: HYPERLIPIDAEMIA
  3. METOPROLOL [Concomitant]
     Indication: CARDIAC DISORDER
     Dosage: 50 mg
  4. RAMIPRIL [Concomitant]
     Indication: CARDIAC DISORDER
  5. SOMAC [Concomitant]
  6. PROPYLTHIOURACIL [Concomitant]
     Indication: THYROID DISORDER
  7. FRUSEMIDE [Concomitant]

REACTIONS (2)
  - Rectal haemorrhage [Recovered/Resolved]
  - Colon cancer [Recovered/Resolved]
